FAERS Safety Report 4884177-X (Version None)
Quarter: 2005Q4

REPORT INFORMATION
  Report Type: 
  Country: None (occurrence: None)
  Receive Date: 20051201
  Receipt Date: 20050909
  Transmission Date: 20060501
  Serious: No
  Sender: FDA-Public Use
  Company Number: 2005PV001976

PATIENT
  Age: 68 Year
  Sex: Female
  Weight: 81.6475 kg

DRUGS (16)
  1. BYETTA [Suspect]
     Indication: DIABETES MELLITUS NON-INSULIN-DEPENDENT
     Dosage: 5 MCG; BID; SC
     Route: 058
     Dates: start: 20050822
  2. GLUCOPHAGE [Concomitant]
  3. AMARYL [Concomitant]
  4. GLUCOVANCE [Concomitant]
  5. ASCORBIC ACID [Concomitant]
  6. FISH OIL [Concomitant]
  7. ASPIRIN [Concomitant]
  8. LOZAL [Concomitant]
  9. PREMARIN [Concomitant]
  10. ACCUPRIL [Concomitant]
  11. LIPITOR [Concomitant]
  12. PREVACID [Concomitant]
  13. CARDIZEM [Concomitant]
  14. NEURONTIN [Concomitant]
  15. TOPROL [Concomitant]
  16. CELEBREX [Concomitant]

REACTIONS (6)
  - BLOOD GLUCOSE DECREASED [None]
  - BLOOD GLUCOSE INCREASED [None]
  - DECREASED APPETITE [None]
  - DRUG INEFFECTIVE [None]
  - HYPERHIDROSIS [None]
  - WEIGHT DECREASED [None]
